FAERS Safety Report 25155909 (Version 2)
Quarter: 2025Q2

REPORT INFORMATION
  Report Type: Report from Study
  Country: US (occurrence: US)
  Receive Date: 20250403
  Receipt Date: 20250611
  Transmission Date: 20250717
  Serious: Yes (Other)
  Sender: UCB
  Company Number: US-UCBSA-2025019226

PATIENT
  Age: 59 Year
  Sex: Female

DRUGS (3)
  1. BIMEKIZUMAB [Suspect]
     Active Substance: BIMEKIZUMAB
     Indication: Psoriatic arthropathy
     Dosage: 320 MILLIGRAM, EV 4 WEEKS
     Dates: start: 20250307
  2. BIMEKIZUMAB [Suspect]
     Active Substance: BIMEKIZUMAB
     Dates: start: 20250328
  3. BIMEKIZUMAB [Suspect]
     Active Substance: BIMEKIZUMAB
     Dates: start: 20250331

REACTIONS (13)
  - Psoriatic arthropathy [Not Recovered/Not Resolved]
  - Malaise [Not Recovered/Not Resolved]
  - Oral disorder [Not Recovered/Not Resolved]
  - Tongue coated [Not Recovered/Not Resolved]
  - Oropharyngeal pain [Not Recovered/Not Resolved]
  - Fatigue [Not Recovered/Not Resolved]
  - Pyrexia [Not Recovered/Not Resolved]
  - Fungal infection [Not Recovered/Not Resolved]
  - Urinary tract infection [Not Recovered/Not Resolved]
  - Decreased appetite [Not Recovered/Not Resolved]
  - Weight decreased [Not Recovered/Not Resolved]
  - Ear pain [Not Recovered/Not Resolved]
  - Inappropriate schedule of product administration [Unknown]

NARRATIVE: CASE EVENT DATE: 20250301
